FAERS Safety Report 11428522 (Version 1)
Quarter: 2015Q3

REPORT INFORMATION
  Report Type: Spontaneous
  Country: US (occurrence: US)
  Receive Date: 20150828
  Receipt Date: 20150828
  Transmission Date: 20151125
  Serious: No
  Sender: FDA-Public Use
  Company Number: US-ROCHE-1231391

PATIENT
  Age: 52 Year
  Sex: Male
  Weight: 136.2 kg

DRUGS (2)
  1. RIBAVIRIN. [Suspect]
     Active Substance: RIBAVIRIN
     Indication: CHRONIC HEPATITIS C
     Dosage: DIVEDED DOSES 400/400
     Route: 065
     Dates: start: 20130524
  2. PEGASYS [Suspect]
     Active Substance: PEGINTERFERON ALFA-2A
     Indication: CHRONIC HEPATITIS C
     Route: 058
     Dates: start: 20130524

REACTIONS (3)
  - Pain in extremity [Unknown]
  - Injection site reaction [Unknown]
  - Back pain [Unknown]

NARRATIVE: CASE EVENT DATE: 20130527
